FAERS Safety Report 9251467 (Version 1)
Quarter: 2013Q2

REPORT INFORMATION
  Report Type: Spontaneous
  Country: FR (occurrence: FR)
  Receive Date: 20130424
  Receipt Date: 20130424
  Transmission Date: 20140414
  Serious: Yes (Other)
  Sender: FDA-Public Use
  Company Number: FR-JNJFOC-20130407053

PATIENT
  Age: 55 Year
  Sex: Female

DRUGS (2)
  1. DUROGESIC [Suspect]
     Indication: ARTHRALGIA
     Route: 062
  2. DUROGESIC [Suspect]
     Indication: TOOTHACHE
     Route: 062

REACTIONS (5)
  - Withdrawal syndrome [Recovering/Resolving]
  - Gastroenteritis [Unknown]
  - Drug ineffective [Unknown]
  - Underdose [Unknown]
  - Tremor [Recovering/Resolving]
